FAERS Safety Report 5925980-4 (Version None)
Quarter: 2008Q3

REPORT INFORMATION
  Report Type: 
  Country: None (occurrence: None)
  Receive Date: 20080923
  Receipt Date: 20070724
  Transmission Date: 20090109
  Serious: Yes (Life-Threatening, Hospitalization, Other)
  Sender: FDA-Public Use
  Company Number: WAES 0707USA03749

PATIENT
  Age: 56 Year
  Sex: Female

DRUGS (2)
  1. VYTORIN [Suspect]
     Dosage: PO
     Route: 048
  2. NEURONTIN [Concomitant]

REACTIONS (1)
  - RHABDOMYOLYSIS [None]
